FAERS Safety Report 4571204-2 (Version None)
Quarter: 2005Q1

REPORT INFORMATION
  Report Type: 
  Country: None (occurrence: None)
  Receive Date: 20050202
  Receipt Date: 20050117
  Transmission Date: 20050727
  Serious: Yes (Death, Hospitalization)
  Sender: FDA-Public Use
  Company Number: B0365656A

PATIENT
  Age: 70 Year
  Sex: Female

DRUGS (8)
  1. LANOXIN [Suspect]
  2. TRAMADOL HCL [Concomitant]
  3. BUMETANIDE [Concomitant]
  4. BISOPROLOL [Concomitant]
  5. FERROUS FUMARATE [Concomitant]
  6. LISINOPRIL [Concomitant]
  7. DOMPERIDONE [Concomitant]
  8. BISACODYL [Concomitant]

REACTIONS (7)
  - ANXIETY [None]
  - CHEST PAIN [None]
  - CONSTIPATION [None]
  - ELECTROCARDIOGRAM ABNORMAL [None]
  - EPIGASTRIC DISCOMFORT [None]
  - NAUSEA [None]
  - THERAPEUTIC AGENT TOXICITY [None]
